FAERS Safety Report 11155991 (Version 1)
Quarter: 2015Q2

REPORT INFORMATION
  Report Type: Spontaneous
  Country: US (occurrence: None)
  Receive Date: 20150529
  Receipt Date: 20150529
  Transmission Date: 20150821
  Serious: Yes (Hospitalization)
  Sender: FDA-Public Use
  Company Number: None

PATIENT
  Age: 35 Year
  Sex: Female
  Weight: 185 kg

DRUGS (6)
  1. INVOKANA [Suspect]
     Active Substance: CANAGLIFLOZIN
     Indication: TYPE 2 DIABETES MELLITUS
     Dosage: 1 TABLET  QD  ORAL
     Route: 048
     Dates: end: 20150516
  2. JANUMET-XR [Concomitant]
  3. GABAPENTIN. [Concomitant]
     Active Substance: GABAPENTIN
  4. GLYBURIDE. [Concomitant]
     Active Substance: GLYBURIDE
  5. HUMALOG KWIKPEN [Concomitant]
     Active Substance: INSULIN LISPRO
  6. LANTUS [Concomitant]
     Active Substance: INSULIN GLARGINE

REACTIONS (6)
  - Presyncope [None]
  - White blood cell count increased [None]
  - Hypotension [None]
  - Diabetic ketoacidosis [None]
  - Sepsis [None]
  - Asthenia [None]

NARRATIVE: CASE EVENT DATE: 20150516
